FAERS Safety Report 12498181 (Version 1)
Quarter: 2016Q2

REPORT INFORMATION
  Report Type: Spontaneous
  Country: US (occurrence: US)
  Receive Date: 20160627
  Receipt Date: 20160627
  Transmission Date: 20160815
  Serious: Yes (Other)
  Sender: FDA-Public Use
  Company Number: US-ACCORD-033868

PATIENT
  Age: 69 Year
  Sex: Female

DRUGS (18)
  1. PENTOXIFYLLINE. [Concomitant]
     Active Substance: PENTOXIFYLLINE
     Dosage: STRENGTH: 400 MG PENTOXIFYLLINE ER (EXTENDED RELEASE TABLET); 1 TABLET DAILY
     Route: 048
     Dates: start: 20150202
  2. ERGOCALCIFEROL. [Concomitant]
     Active Substance: ERGOCALCIFEROL
  3. FISH OIL [Concomitant]
     Active Substance: FISH OIL
     Dosage: FISH OIL BURP-LESS; STRENGTH: 100 MG CAPSULE, 1 ORAL DAILY
     Route: 048
  4. AROMASIN [Concomitant]
     Active Substance: EXEMESTANE
     Dosage: STRENGTH: 25 MG, PO QD, 90 DAY SUPPLY
     Route: 048
  5. LISINOPRIL. [Concomitant]
     Active Substance: LISINOPRIL
     Dosage: STRENGTH: 10 MG TABLET, 1 ORAL DAILY
     Route: 048
     Dates: start: 20150202
  6. BACTROBAN [Concomitant]
     Active Substance: MUPIROCIN\MUPIROCIN CALCIUM
     Dosage: 2% OINTMENT, 2 EXTERNAL DAILY FOR 10 DAYS
  7. PROCARDIA [Concomitant]
     Active Substance: NIFEDIPINE
  8. LETROZOLE ACCORD [Suspect]
     Active Substance: LETROZOLE
     Indication: PRODUCT USED FOR UNKNOWN INDICATION
     Dosage: STRENGTH: 2.5 MG
  9. XANAX [Concomitant]
     Active Substance: ALPRAZOLAM
     Dosage: STRENGTH: 0.5 MG TABLET, 1 ORAL TID
     Route: 048
     Dates: start: 20141112
  10. COLECALCIFEROL [Concomitant]
     Active Substance: CHOLECALCIFEROL
     Dosage: STRENGTH: 100 UNIT TABLET, 1 ORAL DAILY
     Route: 048
  11. FLEXERIL [Concomitant]
     Active Substance: CYCLOBENZAPRINE HYDROCHLORIDE
     Dosage: STRENGTH: 10 MG TABLET, 1 ORAL AT 8 HOURS PRN
     Route: 048
  12. TYLENOL [Concomitant]
     Active Substance: ACETAMINOPHEN
     Dosage: 300.30 MG, 1-2 EVERY 12 HOURS PRN
  13. FLONASE [Concomitant]
     Active Substance: FLUTICASONE PROPIONATE
     Dosage: STRENGTH: 50 MCG/ACT SUSPENSION, 1-2 NASAL DAILY
     Route: 045
     Dates: start: 20140728
  14. ACETYLSALICYLIC ACID [Concomitant]
     Active Substance: ASPIRIN
  15. NORVASC [Concomitant]
     Active Substance: AMLODIPINE BESYLATE
  16. GABAPENTIN. [Concomitant]
     Active Substance: GABAPENTIN
     Dosage: STRENGTH: 100 MG CAPSULE, 2 CAPSULES ORAL TID
     Route: 048
  17. CALCIUM ASCORBATE [Concomitant]
     Active Substance: CALCIUM ASCORBATE
     Dosage: STRENGTH: 500 MG TABLET, 1 ORAL DAILY
     Route: 048
  18. ZOLOFT [Concomitant]
     Active Substance: SERTRALINE HYDROCHLORIDE

REACTIONS (6)
  - Depression [Unknown]
  - Nausea [Unknown]
  - Dizziness [Unknown]
  - Pain [Unknown]
  - Insomnia [Unknown]
  - Fatigue [Unknown]
